FAERS Safety Report 22038210 (Version 1)
Quarter: 2023Q1

REPORT INFORMATION
  Report Type: Spontaneous
  Country: DE (occurrence: DE)
  Receive Date: 20230227
  Receipt Date: 20230227
  Transmission Date: 20230417
  Serious: Yes (Other)
  Sender: FDA-Public Use
  Company Number: DE-EMBRYOTOX-202115296

PATIENT

DRUGS (12)
  1. PREGABALIN [Suspect]
     Active Substance: PREGABALIN
     Indication: Neuralgia
     Dosage: 450 [MG/D ]/ 450 MG/D, REDUCED TO 100 MG/D IN THE COURSE OF PREGNANCY
     Route: 048
     Dates: start: 20210707, end: 20220401
  2. DULOXETINE [Suspect]
     Active Substance: DULOXETINE
     Indication: Depression
     Dosage: 60 [MG/D ]
     Route: 048
     Dates: start: 20210707, end: 20220401
  3. CARBIDOPA\LEVODOPA [Suspect]
     Active Substance: CARBIDOPA\LEVODOPA
     Indication: Restless legs syndrome
     Dosage: 100 [MG/D ] / 25 [MG/D ]
     Route: 048
  4. MIRTAZAPINE [Suspect]
     Active Substance: MIRTAZAPINE
     Indication: Depression
     Dosage: 30 [MG/D ]/ 15 MG/D, INCREASED IN THE COURSE OF PREGNANCY TO 30 MG/D
     Route: 048
     Dates: start: 20210707, end: 20220401
  5. HYDROMORPHONE [Concomitant]
     Active Substance: HYDROMORPHONE
     Indication: Bone pain
     Dosage: 2 [MG/D ]/ 2 MG/D, AT LEAST UNTIL GW 9.2, NOT KNOWN UNTIL WHEN
     Route: 048
     Dates: start: 20210707, end: 20210910
  6. BENSERAZIDE\LEVODOPA [Concomitant]
     Active Substance: BENSERAZIDE\LEVODOPA
     Indication: Restless legs syndrome
     Dosage: 100 [MG/D ] / 25 [MG/D ]/ 100/25 MG/D
     Route: 048
     Dates: start: 20210707, end: 20210910
  7. ATORVASTATIN [Concomitant]
     Active Substance: ATORVASTATIN
     Indication: Hypercholesterolaemia
     Dosage: 10 [MG/D ]/ STOPPED IN EARLY PREGNANCY, GW NOT KNOWN
     Route: 048
  8. FOLIC ACID [Concomitant]
     Active Substance: FOLIC ACID
     Indication: Prophylaxis of neural tube defect
     Dosage: 5 [MG/D ]
     Route: 048
     Dates: start: 20210707, end: 20220401
  9. PANTOPRAZOLE SODIUM [Concomitant]
     Active Substance: PANTOPRAZOLE SODIUM
     Indication: Gastrooesophageal reflux disease
     Dosage: 80 [MG/D ]/ 40 MG 1-2X/D
     Route: 048
     Dates: start: 20210707, end: 20220401
  10. NOVALGIN (METAMIZOLE SODIUM) [Concomitant]
     Active Substance: METAMIZOLE SODIUM
     Indication: Bone pain
     Dosage: 3000 [MG/D ]/ UP TO 3X 1000MG/D, ON DEMAND UNTIL MAX. GW 20;
     Route: 048
  11. EUTHYROX [Concomitant]
     Active Substance: LEVOTHYROXINE SODIUM
     Indication: Hypothyroidism
     Dosage: 75 [MICRO G/D ]
     Route: 048
     Dates: start: 20210707, end: 20220401
  12. BOOSTRIX [Concomitant]
     Active Substance: TETANUS TOXOID, REDUCED DIPHTHERIA TOXOID AND ACELLULAR PERTUSSIS VACCINE, ADSORBED ANTIGENS
     Indication: Immunisation
     Route: 030
     Dates: start: 20220304, end: 20220304

REACTIONS (3)
  - Foetal death [Recovered/Resolved]
  - Stillbirth [Recovered/Resolved]
  - Exposure during pregnancy [Unknown]
